FAERS Safety Report 8124947-8 (Version None)
Quarter: 2012Q1

REPORT INFORMATION
  Report Type: 
  Country: None (occurrence: None)
  Receive Date: 20120209
  Receipt Date: 20120207
  Transmission Date: 20120608
  Serious: Yes (Other)
  Sender: FDA-Public Use
  Company Number: CA-ROCHE-1035639

PATIENT
  Sex: Male

DRUGS (10)
  1. METHOTREXATE [Concomitant]
  2. RAMIPRIL [Concomitant]
  3. PREDNISONE [Concomitant]
  4. WARFARIN SODIUM [Concomitant]
  5. FOLIC ACID [Concomitant]
  6. ZOCOR [Concomitant]
  7. KAYEXALATE [Concomitant]
     Dates: start: 20120103
  8. ASPIRIN [Concomitant]
  9. ACTEMRA [Suspect]
     Indication: RHEUMATOID ARTHRITIS
     Route: 042
     Dates: start: 20111209
  10. BISOPROLOL FUMARATE [Concomitant]

REACTIONS (1)
  - ATRIAL FIBRILLATION [None]
